FAERS Safety Report 10337857 (Version 1)
Quarter: 2014Q3

REPORT INFORMATION
  Report Type: Spontaneous
  Country: US (occurrence: None)
  Receive Date: 20140722
  Receipt Date: 20140722
  Transmission Date: 20150326
  Serious: Yes (Death)
  Sender: FDA-Public Use
  Company Number: None

PATIENT
  Age: 89 Year
  Sex: Male

DRUGS (1)
  1. AMIODARONE [Suspect]
     Active Substance: AMIODARONE
     Indication: ATRIAL FIBRILLATION
     Route: 048
     Dates: start: 2011

REACTIONS (5)
  - Pneumonia [None]
  - Hypotension [None]
  - Toxicity to various agents [None]
  - Cardiac failure congestive [None]
  - Pulmonary oedema [None]

NARRATIVE: CASE EVENT DATE: 20140305
